FAERS Safety Report 9729292 (Version 1)
Quarter: 2013Q4

REPORT INFORMATION
  Report Type: Spontaneous
  Country: GB (occurrence: GB)
  Receive Date: 20131204
  Receipt Date: 20131204
  Transmission Date: 20140711
  Serious: Yes (Congenital Anomaly, Other)
  Sender: FDA-Public Use
  Company Number: GB-TEVA-447742ISR

PATIENT
  Sex: 0

DRUGS (2)
  1. MODAFINIL [Suspect]
     Route: 065
  2. CONTRACEPTIVES [Concomitant]
     Indication: CONTRACEPTION
     Route: 064

REACTIONS (1)
  - Entropion congenital [Recovered/Resolved]
